FAERS Safety Report 9768190 (Version 2)
Quarter: 2014Q1

REPORT INFORMATION
  Report Type: Report from Study
  Country: JP (occurrence: JP)
  Receive Date: 20131217
  Receipt Date: 20140121
  Transmission Date: 20141002
  Serious: Yes (Hospitalization)
  Sender: FDA-Public Use
  Company Number: JP-GLAXOSMITHKLINE-B0952829A

PATIENT
  Age: 78 Year
  Sex: Female
  Weight: 55 kg

DRUGS (20)
  1. REVOLADE [Suspect]
     Indication: IMMUNE THROMBOCYTOPENIC PURPURA
     Route: 048
     Dates: start: 20110228, end: 20110413
  2. REVOLADE [Suspect]
     Indication: IMMUNE THROMBOCYTOPENIC PURPURA
     Route: 048
     Dates: start: 20110414, end: 20110608
  3. REVOLADE [Suspect]
     Indication: IMMUNE THROMBOCYTOPENIC PURPURA
     Route: 048
     Dates: start: 20110609, end: 20110813
  4. REVOLADE [Suspect]
     Indication: IMMUNE THROMBOCYTOPENIC PURPURA
     Route: 048
     Dates: start: 20111216, end: 20111221
  5. REVOLADE [Suspect]
     Indication: IMMUNE THROMBOCYTOPENIC PURPURA
     Route: 048
     Dates: start: 20111222, end: 20120827
  6. REVOLADE [Suspect]
     Indication: IMMUNE THROMBOCYTOPENIC PURPURA
     Route: 048
     Dates: start: 20120828
  7. PREDONINE [Concomitant]
     Indication: IMMUNE THROMBOCYTOPENIC PURPURA
     Dosage: 7.5MG PER DAY
     Route: 048
     Dates: start: 20110915
  8. PREDONINE [Concomitant]
     Indication: IMMUNE THROMBOCYTOPENIC PURPURA
     Route: 048
  9. PARIET [Concomitant]
     Indication: PROPHYLAXIS AGAINST GASTROINTESTINAL ULCER
     Dosage: 10MG PER DAY
     Route: 048
     Dates: start: 20090212
  10. ALFAROL [Concomitant]
     Indication: OSTEOPOROSIS PROPHYLAXIS
     Dosage: .5MCG PER DAY
     Route: 048
     Dates: start: 20050407
  11. ALFAROL [Concomitant]
     Indication: PROPHYLAXIS
     Route: 048
  12. URSO [Concomitant]
     Indication: HEPATIC FUNCTION ABNORMAL
     Dosage: 6IUAX THREE TIMES PER DAY
     Route: 048
     Dates: start: 20121022
  13. EQUA [Concomitant]
     Indication: DIABETES MELLITUS
     Dosage: 1IUAX PER DAY
     Route: 048
     Dates: start: 20121018
  14. METGLUCO [Concomitant]
     Indication: DIABETES MELLITUS
     Dosage: 1IUAX PER DAY
     Route: 048
     Dates: start: 20130404
  15. AMARYL [Concomitant]
     Indication: DIABETES MELLITUS
     Dosage: 1IUAX PER DAY
     Route: 048
     Dates: start: 20090521
  16. FERROMIA [Concomitant]
     Indication: IRON DEFICIENCY ANAEMIA
     Dosage: 50MG PER DAY
     Route: 048
     Dates: start: 20130107
  17. MEDROL [Concomitant]
     Indication: IMMUNE THROMBOCYTOPENIC PURPURA
     Route: 048
  18. LECTISOL [Concomitant]
     Indication: IMMUNE THROMBOCYTOPENIC PURPURA
     Route: 048
     Dates: end: 20110331
  19. NU-LOTAN [Concomitant]
     Route: 048
     Dates: end: 20120912
  20. VALTREX [Concomitant]
     Route: 048
     Dates: start: 20110917, end: 20110921

REACTIONS (6)
  - Headache [Recovered/Resolved]
  - Decreased appetite [Recovered/Resolved]
  - Hepatic function abnormal [Not Recovered/Not Resolved]
  - Musculoskeletal stiffness [Recovering/Resolving]
  - Myalgia [Recovering/Resolving]
  - Dyskinesia [Recovering/Resolving]
